FAERS Safety Report 7912828-1 (Version None)
Quarter: 2011Q4

REPORT INFORMATION
  Report Type: 
  Country: None (occurrence: None)
  Receive Date: 20111114
  Receipt Date: 20111102
  Transmission Date: 20120403
  Serious: Yes (Congenital Anomaly)
  Sender: FDA-Public Use
  Company Number: US-GLAXOSMITHKLINE-A0950464A

PATIENT
  Sex: Female

DRUGS (1)
  1. PAXIL [Suspect]
     Indication: PANIC ATTACK
     Dosage: 20MG PER DAY
     Route: 064

REACTIONS (6)
  - HYDROCEPHALUS [None]
  - FOETAL EXPOSURE DURING PREGNANCY [None]
  - SPINA BIFIDA [None]
  - TALIPES [None]
  - MENINGOMYELOCELE [None]
  - ARNOLD-CHIARI MALFORMATION [None]
